FAERS Safety Report 6341633-5 (Version None)
Quarter: 2009Q3

REPORT INFORMATION
  Report Type: 
  Country: None (occurrence: None)
  Receive Date: 20090904
  Receipt Date: 20090827
  Transmission Date: 20100115
  Serious: Yes (Hospitalization)
  Sender: FDA-Public Use
  Company Number: GB-AMGEN-UK362055

PATIENT
  Sex: Male

DRUGS (28)
  1. PANITUMUMAB [Suspect]
     Indication: COLORECTAL CANCER
     Route: 042
     Dates: start: 20071008
  2. OXALIPLATIN [Concomitant]
     Route: 042
  3. FLUOROURACIL [Concomitant]
     Route: 040
  4. FLUOROURACIL [Concomitant]
     Route: 042
  5. LEUCOVORIN CALCIUM [Concomitant]
     Route: 042
  6. PARACETAMOL [Concomitant]
     Route: 048
     Dates: start: 20050701
  7. GRANISETRON HCL [Concomitant]
     Route: 042
     Dates: start: 20071008
  8. DOMPERIDONE [Concomitant]
     Route: 048
     Dates: start: 20071008, end: 20090519
  9. LOPERAMIDE [Concomitant]
     Route: 048
     Dates: start: 20071008
  10. HEXAMETHYLMELAMINE [Concomitant]
     Route: 048
     Dates: start: 20071008
  11. LACTULOSE [Concomitant]
     Route: 048
     Dates: start: 20050101
  12. NYSTATIN [Concomitant]
     Route: 048
     Dates: start: 20071024
  13. SENNA [Concomitant]
     Route: 048
     Dates: start: 20071008
  14. PYRIDOXINE [Concomitant]
     Route: 050
     Dates: start: 20071101
  15. CHLORHEXIDINE GLUCONATE [Concomitant]
     Route: 048
     Dates: start: 20070901
  16. NULYTELY [Concomitant]
     Route: 048
     Dates: start: 20080301
  17. HYDROCORTISONE [Concomitant]
     Route: 061
     Dates: start: 20070505
  18. OMEPRAZOLE [Concomitant]
     Route: 048
     Dates: start: 20080327
  19. FLUCLOXACILLIN [Concomitant]
     Route: 048
     Dates: start: 20080326, end: 20080908
  20. MORPHINE SULFATE [Concomitant]
     Route: 048
     Dates: start: 20080915
  21. CHLORAMPHENICOL [Concomitant]
     Dates: start: 20090512, end: 20090519
  22. FENTANYL [Concomitant]
     Route: 048
     Dates: start: 20090330, end: 20090330
  23. MAGNESIUM SULFATE [Concomitant]
     Route: 048
     Dates: start: 20090529
  24. CYCLIZINE [Concomitant]
     Route: 048
     Dates: start: 20090813, end: 20090813
  25. OXYCONTIN [Concomitant]
     Dates: start: 20090827
  26. OXYNORM [Concomitant]
     Dates: start: 20090827
  27. GABAPENTIN [Concomitant]
     Route: 048
     Dates: start: 20090827
  28. SEVREDOL [Concomitant]
     Route: 048
     Dates: start: 20090811, end: 20090827

REACTIONS (1)
  - CENTRAL LINE INFECTION [None]
